FAERS Safety Report 7532884-2 (Version None)
Quarter: 2011Q2

REPORT INFORMATION
  Report Type: 
  Country: None (occurrence: None)
  Receive Date: 20110608
  Receipt Date: 20110603
  Transmission Date: 20111010
  Serious: Yes (Death, Hospitalization)
  Sender: FDA-Public Use
  Company Number: AU-PFIZER INC-2011102654

PATIENT
  Age: 67 Year
  Sex: Male
  Weight: 100 kg

DRUGS (4)
  1. BACTRIM [Concomitant]
     Indication: PNEUMONIA
     Dosage: 10 ML, UNK
     Route: 042
     Dates: start: 20110509, end: 20110512
  2. HYDROCORTISONE [Concomitant]
     Indication: ACUTE RESPIRATORY DISTRESS SYNDROME
     Dosage: 100 MG, EVERY 6 HOURS
     Route: 042
     Dates: start: 20110509, end: 20110512
  3. TORISEL [Suspect]
     Indication: METASTATIC RENAL CELL CARCINOMA
     Dosage: 25 MG, UNK
     Route: 042
     Dates: start: 20110511, end: 20110511
  4. SUTENT [Suspect]
     Indication: RENAL CANCER

REACTIONS (5)
  - DISEASE PROGRESSION [None]
  - METASTATIC RENAL CELL CARCINOMA [None]
  - RESPIRATORY FAILURE [None]
  - ACUTE RESPIRATORY DISTRESS SYNDROME [None]
  - PNEUMONIA [None]
